FAERS Safety Report 7313790-5 (Version None)
Quarter: 2011Q1

REPORT INFORMATION
  Report Type: 
  Country: None (occurrence: None)
  Receive Date: 20110225
  Receipt Date: 20110222
  Transmission Date: 20110831
  Serious: Yes (Death, Other)
  Sender: FDA-Public Use
  Company Number: BR-PFIZER INC-2011039082

PATIENT
  Age: 3 Month
  Sex: Male

DRUGS (1)
  1. SILDENAFIL CITRATE [Suspect]
     Indication: PULMONARY HYPERTENSION
     Dosage: 2MG/KG/DOSE, EVERY 6 HOURS
     Route: 048
     Dates: start: 20090709

REACTIONS (4)
  - PNEUMONIA [None]
  - PULMONARY HYPERTENSION [None]
  - ACUTE RESPIRATORY FAILURE [None]
  - HERNIA [None]
